FAERS Safety Report 5487640-6 (Version None)
Quarter: 2007Q4

REPORT INFORMATION
  Report Type: 
  Country: None (occurrence: None)
  Receive Date: 20071012
  Receipt Date: 20071012
  Transmission Date: 20080405
  Serious: Yes (Life-Threatening)
  Sender: FDA-Public Use
  Company Number: None

PATIENT
  Age: 59 Year
  Sex: Female
  Weight: 63.5036 kg

DRUGS (1)
  1. METHYLPREDNISOLONE [Suspect]
     Dosage: 21 TABLETS OVER 6 DAYS DECREASING 21MG P.O.
     Route: 048
     Dates: start: 20070905, end: 20070907

REACTIONS (1)
  - STEVENS-JOHNSON SYNDROME [None]
